FAERS Safety Report 5158962-3 (Version None)
Quarter: 2006Q4

REPORT INFORMATION
  Report Type: 
  Country: None (occurrence: None)
  Receive Date: 20061128
  Receipt Date: 20061101
  Transmission Date: 20070319
  Serious: Yes (Hospitalization)
  Sender: FDA-Public Use
  Company Number: JP-BRISTOL-MYERS SQUIBB COMPANY-13570932

PATIENT
  Age: 65 Year
  Sex: Male

DRUGS (7)
  1. ABILIFY [Suspect]
     Indication: SCHIZOPHRENIA
     Route: 048
     Dates: start: 20060810, end: 20060823
  2. RISPERIDONE [Concomitant]
     Route: 048
     Dates: end: 20060901
  3. BIPERIDEN HYDROCHLORIDE TAB [Concomitant]
     Route: 048
  4. FLUNITRAZEPAM [Concomitant]
     Route: 048
  5. PEROSPIRONE [Concomitant]
     Route: 048
     Dates: start: 20060713, end: 20060823
  6. CHLORPROMAZINE [Concomitant]
     Route: 048
     Dates: end: 20060823
  7. LEVOMEPROMAZINE MALEATE [Concomitant]
     Route: 048
     Dates: end: 20060823

REACTIONS (4)
  - AGITATION [None]
  - INSOMNIA [None]
  - PORIOMANIA [None]
  - RESTLESSNESS [None]
